FAERS Safety Report 7021030-X (Version None)
Quarter: 2010Q3

REPORT INFORMATION
  Report Type: 
  Country: None (occurrence: None)
  Receive Date: 20100924
  Receipt Date: 20100910
  Transmission Date: 20110219
  Serious: Yes (Other)
  Sender: FDA-Public Use
  Company Number: A-CH2009-25214

PATIENT
  Age: 28 Year
  Sex: Female
  Weight: 80 kg

DRUGS (1)
  1. ZAVESCA [Suspect]
     Indication: GAUCHER'S DISEASE
     Dosage: 100 MG, TID, ORAL
     Route: 048
     Dates: start: 20080505, end: 20100810

REACTIONS (14)
  - ASTHENIA [None]
  - DIARRHOEA [None]
  - DISEASE PROGRESSION [None]
  - DISTURBANCE IN ATTENTION [None]
  - DIZZINESS [None]
  - DRUG INEFFECTIVE [None]
  - GAUCHER'S DISEASE [None]
  - HAEMOGLOBIN DECREASED [None]
  - HEADACHE [None]
  - MALAISE [None]
  - PLATELET COUNT DECREASED [None]
  - TREMOR [None]
  - VISUAL IMPAIRMENT [None]
  - WEIGHT DECREASED [None]
